FAERS Safety Report 9315350 (Version 3)
Quarter: 2013Q2

REPORT INFORMATION
  Report Type: Report from Study
  Country: AR (occurrence: AR)
  Receive Date: 20130529
  Receipt Date: 20130603
  Transmission Date: 20140414
  Serious: Yes (Other)
  Sender: FDA-Public Use
  Company Number: PHHY2013AR053938

PATIENT
  Sex: Male

DRUGS (1)
  1. EXFORGE [Suspect]
     Indication: HYPERTENSION
     Dosage: 1 DF (160 MG VALS/5MG AMLO) DAILY
     Route: 048

REACTIONS (6)
  - Arterial occlusive disease [Unknown]
  - Myocardial infarction [Unknown]
  - Hypertension [Not Recovered/Not Resolved]
  - Nervousness [Unknown]
  - Blood pressure inadequately controlled [Not Recovered/Not Resolved]
  - Drug ineffective [Not Recovered/Not Resolved]
